FAERS Safety Report 21615793 (Version 4)
Quarter: 2022Q4

REPORT INFORMATION
  Report Type: Spontaneous
  Country: US (occurrence: US)
  Receive Date: 20221118
  Receipt Date: 20221228
  Transmission Date: 20230113
  Serious: No
  Sender: FDA-Public Use
  Company Number: US-PFIZER INC-PV202200099687

PATIENT
  Age: 63 Year
  Sex: Female
  Weight: 68.027 kg

DRUGS (2)
  1. NIVESTYM [Suspect]
     Active Substance: FILGRASTIM-AAFI
     Indication: White blood cell count
     Dosage: 300 UG, (1 INJECTION DAILY FOR 5 DAYS WEEK AFTER CHEMO)
  2. NIVESTYM [Suspect]
     Active Substance: FILGRASTIM-AAFI
     Dosage: 600 UG/ML (300 MCG/ 0.5ML 5 SHOTS THE WEEK AFTER CHEMO)

REACTIONS (2)
  - White blood cell count decreased [Unknown]
  - Off label use [Unknown]
